FAERS Safety Report 4513327-X (Version None)
Quarter: 2004Q4

REPORT INFORMATION
  Report Type: 
  Country: None (occurrence: None)
  Receive Date: 20041130
  Receipt Date: 20040809
  Transmission Date: 20050328
  Serious: No
  Sender: FDA-Public Use
  Company Number: US-BRISTOL-MYERS SQUIBB COMPANY-12664793

PATIENT
  Age: 78 Year
  Sex: Male
  Weight: 66 kg

DRUGS (12)
  1. ERBITUX [Suspect]
     Indication: COLON CANCER METASTATIC
     Dosage: 1ST DOSE, HAD REC'D 7 TOTAL DOSES AT 433 MG
     Route: 042
     Dates: start: 20040805, end: 20040805
  2. FERROUS SULFATE TAB [Concomitant]
  3. HYDROCHLOROTHIAZIDE [Concomitant]
  4. ASPIRIN [Concomitant]
  5. FOLIC ACID [Concomitant]
  6. DILTIAZEM HCL [Concomitant]
  7. ARICEPT [Concomitant]
  8. ZOLOFT [Concomitant]
  9. POTASSIUM SUPPLEMENT [Concomitant]
  10. CYPROHEPTADINE HCL [Concomitant]
  11. PRILOSEC [Concomitant]
  12. COMPAZINE [Concomitant]

REACTIONS (2)
  - DIZZINESS [None]
  - HEADACHE [None]
